FAERS Safety Report 6648008-X (Version None)
Quarter: 2010Q1

REPORT INFORMATION
  Report Type: 
  Country: None (occurrence: None)
  Receive Date: 20100324
  Receipt Date: 20100316
  Transmission Date: 20100710
  Serious: Yes (Hospitalization)
  Sender: FDA-Public Use
  Company Number: DE-SANOFI-AVENTIS-2010SA014797

PATIENT
  Sex: Female

DRUGS (4)
  1. TAXOTERE [Suspect]
     Route: 041
     Dates: start: 20100107, end: 20100107
  2. TAXOTERE [Suspect]
     Route: 041
     Dates: start: 20100311, end: 20100311
  3. EPIRUBICIN [Suspect]
     Route: 042
  4. CYCLOPHOSPHAMIDE [Suspect]
     Route: 042

REACTIONS (3)
  - ASTHENIA [None]
  - DYSPHAGIA [None]
  - INSOMNIA [None]
